FAERS Safety Report 10264158 (Version 2)
Quarter: 2016Q2

REPORT INFORMATION
  Report Type: Report from Study
  Country: US (occurrence: US)
  Receive Date: 20140627
  Receipt Date: 20160518
  Transmission Date: 20160815
  Serious: Yes (Other)
  Sender: FDA-Public Use
  Company Number: US-ROCHE-1369483

PATIENT
  Sex: Female
  Weight: 107 kg

DRUGS (15)
  1. MUCINEX [Concomitant]
     Active Substance: GUAIFENESIN
  2. PROVENTIL HFA [Concomitant]
     Active Substance: ALBUTEROL SULFATE
     Dosage: 2 PUFFS
     Route: 065
  3. SINGULAIR [Concomitant]
     Active Substance: MONTELUKAST SODIUM
     Route: 048
  4. XOLAIR [Suspect]
     Active Substance: OMALIZUMAB
     Indication: PRODUCT USED FOR UNKNOWN INDICATION
     Route: 058
  5. PULMICORT FLEXHALER [Concomitant]
     Active Substance: BUDESONIDE
     Route: 065
  6. ALBUTEROL. [Concomitant]
     Active Substance: ALBUTEROL
     Dosage: NEB. SOL 0.083%
     Route: 065
  7. EPIPEN [Concomitant]
     Active Substance: EPINEPHRINE
     Dosage: (0.3MG) UNS 1 INJECTION
     Route: 065
  8. PRILOSEC [Concomitant]
     Active Substance: OMEPRAZOLE MAGNESIUM
     Route: 048
  9. ROBITUSSIN MAXIMUM STRENGTH COUGH [Concomitant]
     Active Substance: DEXTROMETHORPHAN HYDROBROMIDE
     Route: 065
  10. NASONEX [Concomitant]
     Active Substance: MOMETASONE FUROATE
     Route: 065
  11. SEPTRA DS [Concomitant]
     Active Substance: SULFAMETHOXAZOLE\TRIMETHOPRIM
     Dosage: FOR 10 DAYS
     Route: 065
     Dates: end: 20120223
  12. XANAX [Concomitant]
     Active Substance: ALPRAZOLAM
     Route: 048
  13. ZYRTEC [Concomitant]
     Active Substance: CETIRIZINE HYDROCHLORIDE
     Route: 048
  14. FLONASE (UNITED STATES) [Concomitant]
     Route: 045
  15. GEOPEN [Concomitant]
     Active Substance: CARBENICILLIN DISODIUM
     Route: 048

REACTIONS (4)
  - Bone pain [Unknown]
  - Anaphylactic reaction [Unknown]
  - Seasonal allergy [Unknown]
  - Asthma [Unknown]
